FAERS Safety Report 22031921 (Version 1)
Quarter: 2023Q1

REPORT INFORMATION
  Report Type: Spontaneous
  Country: DE (occurrence: DE)
  Receive Date: 20230224
  Receipt Date: 20230224
  Transmission Date: 20230417
  Serious: Yes (Hospitalization, Disabling)
  Sender: FDA-Public Use
  Company Number: DE-SERVIER-S22013370

PATIENT

DRUGS (2)
  1. IVOSIDENIB [Suspect]
     Active Substance: IVOSIDENIB
     Indication: Cholangiocarcinoma
     Dosage: UNK
     Route: 048
     Dates: end: 20221216
  2. IVOSIDENIB [Suspect]
     Active Substance: IVOSIDENIB
     Dosage: UNK
     Route: 048
     Dates: start: 20230103, end: 20230213

REACTIONS (3)
  - Ascites [Recovered/Resolved with Sequelae]
  - General physical health deterioration [Unknown]
  - Asthenia [Unknown]

NARRATIVE: CASE EVENT DATE: 20221212
